FAERS Safety Report 5239231-X (Version None)
Quarter: 2007Q1

REPORT INFORMATION
  Report Type: 
  Country: None (occurrence: None)
  Receive Date: 20061208
  Receipt Date: 20050606
  Transmission Date: 20070707
  Serious: Yes (Other)
  Sender: FDA-Public Use
  Company Number: 2005UW08669

PATIENT
  Age: 67 Year
  Sex: Female
  Weight: 70.306 kg

DRUGS (4)
  1. CRESTOR [Suspect]
     Indication: BLOOD CHOLESTEROL INCREASED
     Dosage: 5 MG PO
     Route: 048
     Dates: start: 20050603
  2. NEXIUM [Concomitant]
  3. EVISTA [Concomitant]
  4. LOTRIAL [Concomitant]

REACTIONS (2)
  - DYSPEPSIA [None]
  - HEART RATE INCREASED [None]
